FAERS Safety Report 25287810 (Version 1)
Quarter: 2025Q2

REPORT INFORMATION
  Report Type: Spontaneous
  Country: US (occurrence: None)
  Receive Date: 20250508
  Receipt Date: 20250508
  Transmission Date: 20250717
  Serious: Yes (Disabling)
  Sender: FDA-CTU
  Company Number: None

PATIENT
  Age: 47 Year
  Sex: Female
  Weight: 69.75 kg

DRUGS (10)
  1. TIRZEPATIDE [Suspect]
     Active Substance: TIRZEPATIDE
     Indication: Weight decreased
     Route: 058
     Dates: start: 20250101, end: 20250419
  2. Amitriptyline, [Concomitant]
  3. Vyvanse, [Concomitant]
  4. Viibryd, [Concomitant]
  5. Buspar, [Concomitant]
  6. PREGABALIN [Concomitant]
     Active Substance: PREGABALIN
  7. diazepam, [Concomitant]
  8. hydrocodone, [Concomitant]
  9. LISINOPRIL [Concomitant]
     Active Substance: LISINOPRIL
  10. IRON [Concomitant]
     Active Substance: IRON

REACTIONS (9)
  - Anxiety [None]
  - Panic attack [None]
  - Abdominal pain upper [None]
  - Feeling jittery [None]
  - Muscular weakness [None]
  - Sensory disturbance [None]
  - Hypophagia [None]
  - Depression [None]
  - Mood altered [None]

NARRATIVE: CASE EVENT DATE: 20250419
